FAERS Safety Report 6729070-2 (Version None)
Quarter: 2010Q2

REPORT INFORMATION
  Report Type: 
  Country: None (occurrence: None)
  Receive Date: 20100517
  Receipt Date: 20100408
  Transmission Date: 20101027
  Serious: No
  Sender: FDA-Public Use
  Company Number: US-ABBOTT-10P-163-0637061-00

PATIENT
  Sex: Male
  Weight: 117.13 kg

DRUGS (5)
  1. SIMCOR [Suspect]
     Indication: BLOOD TRIGLYCERIDES INCREASED
     Dates: start: 20100301, end: 20100322
  2. SIMCOR [Suspect]
     Indication: BLOOD CHOLESTEROL INCREASED
  3. INSULIN [Concomitant]
     Indication: DRUG USE FOR UNKNOWN INDICATION
     Route: 058
  4. METFORMIN HYDROCHLORIDE [Concomitant]
     Indication: DRUG USE FOR UNKNOWN INDICATION
     Route: 048
  5. OTHER CHOLESTEROL MEDICATION [Concomitant]
     Indication: DRUG USE FOR UNKNOWN INDICATION
     Route: 048

REACTIONS (2)
  - BLOOD GLUCOSE INCREASED [None]
  - GENERALISED ERYTHEMA [None]
